FAERS Safety Report 4428683-0 (Version None)
Quarter: 2004Q3

REPORT INFORMATION
  Report Type: 
  Country: None (occurrence: None)
  Receive Date: 20040818
  Receipt Date: 20031028
  Transmission Date: 20050211
  Serious: No
  Sender: FDA-Public Use
  Company Number: US-BRISTOL-MYERS SQUIBB COMPANY-12420402

PATIENT
  Age: 75 Year
  Sex: Female
  Weight: 67 kg

DRUGS (7)
  1. TEQUIN [Suspect]
     Indication: CELLULITIS
     Route: 048
     Dates: start: 20031027
  2. ASPIRIN [Concomitant]
     Dosage: FOR YEARS
  3. TOPROL-XL [Concomitant]
     Dosage: FOR YEARS
  4. LOTREL [Concomitant]
     Dosage: 5 MG/20 MG, FOR YEARS
  5. SYNTHROID [Concomitant]
     Dosage: FOR YEARS
  6. LIPITOR [Concomitant]
     Dosage: FOR YEARS
  7. ALLEGRA [Concomitant]
     Dosage: FOR A COUPLE OF DAYS

REACTIONS (2)
  - ABDOMINAL PAIN UPPER [None]
  - NAUSEA [None]
